FAERS Safety Report 6267503-9 (Version None)
Quarter: 2009Q3

REPORT INFORMATION
  Report Type: 
  Country: None (occurrence: None)
  Receive Date: 20090714
  Receipt Date: 20090706
  Transmission Date: 20100115
  Serious: Yes (Other)
  Sender: FDA-Public Use
  Company Number: GB-MERCK-0907GBR00025

PATIENT
  Age: 40 Year
  Sex: Female

DRUGS (4)
  1. SINGULAIR [Suspect]
     Indication: ASTHMA
     Route: 048
     Dates: start: 20090521
  2. DICLOFENAC [Concomitant]
     Route: 048
     Dates: start: 20090303
  3. BECLOMETHASONE DIPROPIONATE [Concomitant]
  4. ALBUTEROL [Concomitant]

REACTIONS (3)
  - ARTHRALGIA [None]
  - HEADACHE [None]
  - LYMPHADENOPATHY [None]
